FAERS Safety Report 23432649 (Version 1)
Quarter: 2024Q1

REPORT INFORMATION
  Report Type: Spontaneous
  Country: US (occurrence: US)
  Receive Date: 20240123
  Receipt Date: 20240123
  Transmission Date: 20240409
  Serious: No
  Sender: FDA-Public Use
  Company Number: US-BAYER-2024A004118

PATIENT
  Sex: Female

DRUGS (2)
  1. EOVIST [Suspect]
     Active Substance: GADOXETATE DISODIUM
     Indication: Magnetic resonance imaging
     Dosage: UNK UNK, ONCE
     Dates: start: 20231219, end: 20231219
  2. GADOLINIUM [Suspect]
     Active Substance: GADOLINIUM
     Indication: Magnetic resonance imaging
     Dosage: UNK, ONCE
     Dates: start: 20231219, end: 20231219

REACTIONS (11)
  - Illness [None]
  - Vomiting [None]
  - Dizziness [None]
  - Gastrooesophageal reflux disease [Not Recovered/Not Resolved]
  - Paraesthesia [None]
  - Abdominal distension [None]
  - Eating disorder [None]
  - Feeling hot [None]
  - Chills [None]
  - Heart rate increased [None]
  - Throat irritation [None]
